FAERS Safety Report 7178860-3 (Version None)
Quarter: 2010Q4

REPORT INFORMATION
  Report Type: 
  Country: None (occurrence: None)
  Receive Date: 20101221
  Receipt Date: 20101213
  Transmission Date: 20110411
  Serious: Yes (Life-Threatening, Disabling)
  Sender: FDA-Public Use
  Company Number: DE-BRISTOL-MYERS SQUIBB COMPANY-14842983

PATIENT
  Age: 53 Year
  Sex: Female
  Weight: 55 kg

DRUGS (4)
  1. REYATAZ [Suspect]
     Indication: HIV INFECTION
     Route: 048
     Dates: start: 20040722, end: 20090924
  2. NORVIR [Suspect]
     Indication: HIV INFECTION
     Dosage: CAPSULES
     Route: 048
     Dates: start: 20040722, end: 20090924
  3. TRUVADA [Suspect]
     Indication: HIV INFECTION
     Dosage: 1DF=1TABS
     Route: 048
     Dates: start: 20050503, end: 20090924
  4. CEFUROXIME AXETIL [Suspect]
     Indication: SINUSITIS
     Dosage: CEFUHEXAL
     Route: 048
     Dates: start: 20090908, end: 20090922

REACTIONS (5)
  - CHILLS [None]
  - RENAL FAILURE ACUTE [None]
  - RENAL TUBULAR ACIDOSIS [None]
  - SINUSITIS [None]
  - VOMITING [None]
